FAERS Safety Report 7493695-X (Version None)
Quarter: 2011Q2

REPORT INFORMATION
  Report Type: 
  Country: None (occurrence: None)
  Receive Date: 20110513
  Receipt Date: 20110502
  Transmission Date: 20111010
  Serious: Yes (Other)
  Sender: FDA-Public Use
  Company Number: 2011P1006264

PATIENT
  Age: 60 Year
  Sex: Male

DRUGS (5)
  1. LOSARTAN POTASSIUM [Concomitant]
  2. BISOPROLOL [Concomitant]
  3. PANTOPRAZOLE [Concomitant]
  4. ATORVASTATIN [Concomitant]
  5. MELOXICAM [Suspect]
     Indication: OSTEOARTHRITIS
     Dosage: 15 MG;QD
     Dates: start: 20090101

REACTIONS (5)
  - OEDEMA PERIPHERAL [None]
  - URINE OUTPUT DECREASED [None]
  - NEPHROTIC SYNDROME [None]
  - HYPERCHOLESTEROLAEMIA [None]
  - BLOOD PRESSURE SYSTOLIC INCREASED [None]
